FAERS Safety Report 23905503 (Version 2)
Quarter: 2024Q2

REPORT INFORMATION
  Report Type: Spontaneous
  Country: US (occurrence: US)
  Receive Date: 20240527
  Receipt Date: 20240530
  Transmission Date: 20240716
  Serious: No
  Sender: FDA-Public Use
  Company Number: US-BAXTER-2024BAX018824

PATIENT
  Sex: Female

DRUGS (1)
  1. CLINIMIX E [Suspect]
     Active Substance: ALANINE\AMINO ACIDS\ARGININE\CALCIUM CHLORIDE\DEXTROSE\GLYCINE\HISTIDINE\ISOLEUCINE\LEUCINE\LYSINE\M
     Indication: Parenteral nutrition
     Dosage: (CLINIMIX 4.25/5) AT AN UNSPECIFIED DOSE AND FREQUENCY
     Route: 042
     Dates: start: 20240520, end: 20240524

REACTIONS (3)
  - Administration site extravasation [Recovered/Resolved]
  - Induration [Recovered/Resolved]
  - Erythema [Recovered/Resolved]

NARRATIVE: CASE EVENT DATE: 20240520
